FAERS Safety Report 6240685-0 (Version None)
Quarter: 2009Q2

REPORT INFORMATION
  Report Type: 
  Country: None (occurrence: None)
  Receive Date: 20090623
  Receipt Date: 20090327
  Transmission Date: 20091009
  Serious: No
  Sender: FDA-Public Use
  Company Number: US-ASTRAZENECA-2009UW01943

PATIENT
  Sex: Female

DRUGS (2)
  1. PULMICORT FLEXHALER [Suspect]
     Indication: OBSTRUCTIVE AIRWAYS DISORDER
     Dosage: UNKNOWN
     Route: 055
  2. PULMICORT FLEXHALER [Suspect]
     Dosage: UNKNOWN
     Route: 055
     Dates: start: 20080101

REACTIONS (1)
  - PULMONARY FUNCTION TEST DECREASED [None]
